FAERS Safety Report 9369454 (Version 2)
Quarter: 2013Q4

REPORT INFORMATION
  Report Type: Report from Study
  Country: NL (occurrence: NL)
  Receive Date: 20130626
  Receipt Date: 20131111
  Transmission Date: 20140711
  Serious: Yes (Hospitalization, Other)
  Sender: FDA-Public Use
  Company Number: PHHY2013NL065328

PATIENT
  Age: 72 Year
  Sex: Female

DRUGS (8)
  1. ZOMETA [Suspect]
     Indication: BREAST CANCER METASTATIC
     Dosage: 4 MG, PER 100ML ONCE PER 4 WEEKS
     Route: 042
  2. ZOMETA [Suspect]
     Dosage: 4 MG, PER 100ML ONCE PER 4 WEEKS
     Route: 042
     Dates: start: 20130527
  3. ZOMETA [Suspect]
     Dosage: 4 MG, PER 100ML ONCE PER 4 WEEKS
     Route: 042
     Dates: start: 20130624
  4. ZOMETA [Suspect]
     Dosage: 4 MG PER 100ML ONCE PER 4 WEEKS
     Route: 042
     Dates: start: 20131011
  5. FENTANYL [Concomitant]
     Dosage: 50 UG PER 72 HOURS
  6. OXYNORM [Concomitant]
     Dosage: 5 MG, PER 6 HOURS
  7. PARACETAMOL [Concomitant]
     Dosage: 500 MG, PER 6 HOURS
  8. ESOMEPRAZOLE [Concomitant]
     Dosage: 20 MG, PER 2 HOURS

REACTIONS (6)
  - Dyspnoea [Recovering/Resolving]
  - Lower respiratory tract infection [Recovered/Resolved]
  - Mucosal inflammation [Recovered/Resolved]
  - Influenza like illness [Recovered/Resolved]
  - Pain [Unknown]
  - Cough [Unknown]
